FAERS Safety Report 10932671 (Version 9)
Quarter: 2016Q1

REPORT INFORMATION
  Report Type: Spontaneous
  Country: CA (occurrence: CA)
  Receive Date: 20150320
  Receipt Date: 20160211
  Transmission Date: 20160525
  Serious: Yes (Other)
  Sender: FDA-Public Use
  Company Number: CA-ROCHE-1553734

PATIENT
  Age: 46 Year
  Sex: Female

DRUGS (5)
  1. ADVAIR HFA [Concomitant]
     Active Substance: FLUTICASONE PROPIONATE\SALMETEROL XINAFOATE
  2. XOLAIR [Suspect]
     Active Substance: OMALIZUMAB
     Indication: ASTHMA
     Route: 058
     Dates: start: 20141021
  3. VENTOLIN [Concomitant]
     Active Substance: ALBUTEROL SULFATE
  4. ANAFRANIL [Concomitant]
     Active Substance: CLOMIPRAMINE HYDROCHLORIDE
  5. CLONAZEPAM. [Concomitant]
     Active Substance: CLONAZEPAM

REACTIONS (10)
  - Influenza [Unknown]
  - Hyposmia [Unknown]
  - Sputum discoloured [Unknown]
  - Malaise [Unknown]
  - Nasal discharge discolouration [Unknown]
  - Pneumonia [Recovering/Resolving]
  - Ear infection [Recovering/Resolving]
  - Cough [Not Recovered/Not Resolved]
  - Sinusitis [Unknown]
  - Anxiety [Unknown]

NARRATIVE: CASE EVENT DATE: 20141024
